FAERS Safety Report 10377687 (Version 2)
Quarter: 2015Q2

REPORT INFORMATION
  Report Type: Report from Study
  Country: BR (occurrence: BR)
  Receive Date: 20140812
  Receipt Date: 20150423
  Transmission Date: 20150821
  Serious: Yes (Death, Other)
  Sender: FDA-Public Use
  Company Number: PHHY2014BR099183

PATIENT
  Age: 90 Year
  Sex: Male
  Weight: 52 kg

DRUGS (9)
  1. ANCORON [Concomitant]
     Active Substance: AMIODARONE HYDROCHLORIDE
     Indication: HYPERTENSION
     Dosage: 0.5 DF, QD (AT NIGHT)
     Route: 065
  2. EXELON [Suspect]
     Active Substance: RIVASTIGMINE TARTRATE
     Indication: DEMENTIA ALZHEIMER^S TYPE
     Dosage: 1 DF, BID (1 TABLET IN THE MORNING AND 1 TABLET AT NIGHT)
     Route: 065
     Dates: start: 200603
  3. OMEPRAZOLE. [Concomitant]
     Active Substance: OMEPRAZOLE
     Indication: PROPHYLAXIS
     Dosage: 1 DF, DAILY
     Route: 065
  4. MEMANTINE [Suspect]
     Active Substance: MEMANTINE
     Indication: PRODUCT USED FOR UNKNOWN INDICATION
     Dosage: 2 DF, QD
     Route: 065
  5. EXELON [Suspect]
     Active Substance: RIVASTIGMINE TARTRATE
     Dosage: 2 DF, QD
     Route: 065
     Dates: end: 20150118
  6. OMEPRAZOLE. [Concomitant]
     Active Substance: OMEPRAZOLE
     Dosage: 1 DF, BID (IN THE MORNING AND AT NIGHT)
     Route: 065
  7. ARADOIS [Concomitant]
     Active Substance: LOSARTAN POTASSIUM
     Indication: PRODUCT USED FOR UNKNOWN INDICATION
     Dosage: UNK
     Route: 065
  8. SOMALGIN [Concomitant]
     Active Substance: ASPIRIN\DIHYDROXYALUMINUM AMINOACETATE ANHYDROUS\MAGNESIUM CARBONATE
     Indication: POOR PERIPHERAL CIRCULATION
     Dosage: 1 DF, QD (AFTER LUNCH)
     Route: 065
  9. METFORMIN [Concomitant]
     Active Substance: METFORMIN HYDROCHLORIDE
     Indication: DIABETES MELLITUS
     Dosage: 2 DF, UNK
     Route: 065

REACTIONS (10)
  - Eating disorder [Fatal]
  - Acute respiratory failure [Fatal]
  - Ileus paralytic [Not Recovered/Not Resolved]
  - Anaemia [Recovering/Resolving]
  - Aggression [Fatal]
  - Chest pain [Recovered/Resolved]
  - Hypothalamo-pituitary disorder [Recovering/Resolving]
  - Weight increased [Fatal]
  - Diet refusal [Not Recovered/Not Resolved]
  - Agitation [Recovering/Resolving]

NARRATIVE: CASE EVENT DATE: 201301
